FAERS Safety Report 8178781-3 (Version None)
Quarter: 2012Q1

REPORT INFORMATION
  Report Type: 
  Country: None (occurrence: None)
  Receive Date: 20120301
  Receipt Date: 20120222
  Transmission Date: 20120608
  Serious: Yes (Other)
  Sender: FDA-Public Use
  Company Number: US-ASTRAZENECA-2012SE12515

PATIENT
  Age: 58 Year
  Sex: Male

DRUGS (2)
  1. BLOOD PRESSURE PILLS [Concomitant]
  2. NEXIUM [Suspect]
     Route: 048

REACTIONS (4)
  - GOUT [None]
  - GLAUCOMA [None]
  - EXOSTOSIS [None]
  - ULCER [None]
